FAERS Safety Report 6734260-9 (Version None)
Quarter: 2010Q2

REPORT INFORMATION
  Report Type: 
  Country: None (occurrence: None)
  Receive Date: 20100520
  Receipt Date: 20100517
  Transmission Date: 20101027
  Serious: Yes (Death, Hospitalization)
  Sender: FDA-Public Use
  Company Number: PHHY2010JP04629

PATIENT
  Sex: Female

DRUGS (30)
  1. ZOMETA [Suspect]
     Indication: METASTASES TO BONE
     Dosage: UNK
     Route: 042
     Dates: start: 20080601
  2. ZOMETA [Suspect]
     Dosage: 4 MG, UNK
     Route: 042
     Dates: start: 20081022, end: 20100113
  3. MS CONTIN [Suspect]
     Indication: ADVERSE REACTION
     Dosage: 30 MG DAILY
     Route: 048
     Dates: start: 20080601
  4. MS CONTIN [Suspect]
     Dosage: UNK
     Dates: start: 20081022, end: 20100203
  5. OPSO [Suspect]
     Indication: CANCER PAIN
     Dosage: 10 MG, UNK
     Route: 048
     Dates: start: 20091206, end: 20100203
  6. ANALGESICS [Concomitant]
     Indication: METASTASES TO BONE
  7. PRIMPERAN TAB [Concomitant]
     Indication: NAUSEA
     Dosage: 5 MG, UNK
     Dates: start: 20091231, end: 20100203
  8. DUROTEP [Concomitant]
     Indication: CANCER PAIN
     Dosage: 2.1 MG, UNK
     Route: 062
     Dates: start: 20011216
  9. DUROTEP [Concomitant]
     Dosage: 4.2 MG, UNK
     Route: 062
  10. ANPEC [Concomitant]
     Indication: CANCER PAIN
     Dosage: 10 MG, UNK
     Dates: start: 20100117, end: 20100203
  11. LECICARBON [Concomitant]
     Indication: CONSTIPATION
     Dosage: 1 DF, UNK
     Dates: start: 20100128, end: 20100203
  12. RINDERON [Concomitant]
     Dosage: 1 MG, UNK
     Route: 048
     Dates: start: 20081022, end: 20090212
  13. TETRAMIDE [Concomitant]
     Indication: CANCER PAIN
     Dosage: 20 MG, UNK
     Route: 048
     Dates: start: 20081022, end: 20090127
  14. TAKEPRON [Concomitant]
     Indication: CANCER PAIN
     Dosage: 15 MG, UNK
     Route: 048
     Dates: start: 20081022, end: 20100117
  15. MAGMITT [Concomitant]
     Indication: DEPRESSED MOOD
     Dosage: 990 MG, UNK
     Route: 048
     Dates: start: 20081022, end: 20100127
  16. ARIMIDEX [Concomitant]
     Indication: ADVERSE REACTION
     Dosage: 1 MG, UNK
     Route: 048
     Dates: start: 20081022, end: 20100127
  17. HYPEN [Concomitant]
     Indication: ADVERSE REACTION
     Dosage: 400 MG, UNK
     Route: 048
     Dates: start: 20081022, end: 20100127
  18. PURSENNID [Concomitant]
     Indication: ADVERSE REACTION
     Dosage: 24 MG, UNK
     Dates: start: 20081022, end: 20100127
  19. AMOBAN [Concomitant]
     Indication: ADVERSE REACTION
     Dosage: 7.5 MG, UNK
     Route: 048
     Dates: start: 20081022, end: 20100127
  20. GASMOTIN [Concomitant]
     Indication: IMPAIRED GASTRIC EMPTYING
     Dosage: 7.5 MG, UNK
     Route: 048
     Dates: start: 20091118, end: 20100127
  21. NAUZELIN [Concomitant]
     Indication: NAUSEA
     Dosage: 60 MG, UNK
     Dates: start: 20091206, end: 20100128
  22. CATLEP [Concomitant]
     Indication: CANCER PAIN
     Dosage: 70 MG, UNK
     Dates: start: 20091212, end: 20100128
  23. ELCITONIN [Concomitant]
     Indication: HYPERCALCAEMIA
     Dosage: 80 DF, UNK
     Route: 042
     Dates: start: 20091209
  24. ELCITONIN [Concomitant]
     Dosage: 40 DF, UNK
     Dates: end: 20091221
  25. ELCITONIN [Concomitant]
     Dosage: 80 DF, UNK
     Route: 042
     Dates: end: 20100105
  26. SULBENICILLIN [Concomitant]
     Indication: URINARY TRACT INFECTION
     Dosage: 3 G, UNK
     Route: 042
     Dates: start: 20100118, end: 20100125
  27. DEXART [Concomitant]
     Indication: MALAISE
     Dosage: 2 MG, UNK
     Route: 042
     Dates: start: 20100119
  28. FENTANYL [Concomitant]
     Indication: CANCER PAIN
     Dosage: 1 DF, UNK
     Route: 042
     Dates: start: 20100201, end: 20100203
  29. LASIX [Concomitant]
     Indication: HYPERCALCAEMIA
     Dosage: 20 MG, UNK
     Route: 042
     Dates: start: 20091217, end: 20091218
  30. PREDONINE [Concomitant]
     Indication: NAUSEA
     Dosage: 20 MG, UNK
     Dates: start: 20091217, end: 20091218

REACTIONS (21)
  - ASPARTATE AMINOTRANSFERASE INCREASED [None]
  - BLOOD ALBUMIN DECREASED [None]
  - BLOOD ALKALINE PHOSPHATASE INCREASED [None]
  - BLOOD CALCIUM INCREASED [None]
  - BLOOD SODIUM DECREASED [None]
  - BREAST CANCER RECURRENT [None]
  - DIZZINESS [None]
  - ESCHERICHIA INFECTION [None]
  - FALL [None]
  - FEMUR FRACTURE [None]
  - HAEMATOCRIT DECREASED [None]
  - HAEMOGLOBIN DECREASED [None]
  - HYPOPHAGIA [None]
  - METASTASES TO MENINGES [None]
  - NAUSEA [None]
  - PYREXIA [None]
  - RED BLOOD CELL COUNT DECREASED [None]
  - SENSATION OF FOREIGN BODY [None]
  - SEPSIS [None]
  - URINARY TRACT INFECTION [None]
  - VOMITING [None]
